FAERS Safety Report 9912905 (Version 2)
Quarter: 2014Q1

REPORT INFORMATION
  Report Type: Report from Study
  Country: BR (occurrence: BR)
  Receive Date: 20140220
  Receipt Date: 20140220
  Transmission Date: 20141002
  Serious: Yes (Other)
  Sender: FDA-Public Use
  Company Number: BR-SA-2013SA094308

PATIENT
  Age: 51 Year
  Sex: Male
  Weight: 72 kg

DRUGS (9)
  1. FABRAZYME [Suspect]
     Indication: FABRY^S DISEASE
     Route: 042
     Dates: start: 20130806
  2. HYDROCHLOROTHIAZIDE [Concomitant]
  3. ALLOPURINOL [Concomitant]
  4. LOSARTAN [Concomitant]
  5. ALENIA [Concomitant]
     Dosage: 12/400
  6. ZYRTEC [Concomitant]
     Indication: PREMEDICATION
     Route: 048
  7. SINGULAIR [Concomitant]
     Indication: PREMEDICATION
     Route: 048
  8. FAMOTIDINE [Concomitant]
     Indication: PREMEDICATION
     Route: 048
  9. SALBUTAMOL [Concomitant]
     Indication: PREMEDICATION
     Dosage: STEAM INHALER
     Route: 055

REACTIONS (1)
  - Mass [Recovered/Resolved]
